FAERS Safety Report 8783087 (Version 1)
Quarter: 2012Q4

REPORT INFORMATION
  Report Type: Report from Study
  Country: US (occurrence: US)
  Receive Date: 20120914
  Receipt Date: 20120914
  Transmission Date: 20130627
  Serious: Yes (Hospitalization)
  Sender: FDA-Public Use
  Company Number: US-ROCHE-1113581

PATIENT
  Age: 63 Year
  Sex: Male
  Weight: 90.9 kg

DRUGS (1)
  1. RANIBIZUMAB [Suspect]
     Indication: DIABETIC RETINAL OEDEMA
     Dosage: 10 MG/ML, 0.3 ML/VIAL
     Route: 050
     Dates: start: 20111223

REACTIONS (1)
  - Hypertensive crisis [Unknown]
